FAERS Safety Report 4895483-7 (Version None)
Quarter: 2005Q4

REPORT INFORMATION
  Report Type: 
  Country: None (occurrence: None)
  Receive Date: 20051220
  Receipt Date: 20050516
  Transmission Date: 20060501
  Serious: Yes (Other)
  Sender: FDA-Public Use
  Company Number: US137910

PATIENT
  Age: 74 Year
  Sex: Male

DRUGS (13)
  1. ENBREL [Suspect]
     Indication: PSORIATIC ARTHROPATHY
     Dosage: 25 MG, 2 IN 1 WEEKS; SC
     Route: 058
     Dates: start: 20040119, end: 20050215
  2. COLCHICINE [Concomitant]
  3. SPIRONOLACTONE [Concomitant]
  4. RAMIPRIL [Concomitant]
  5. DESLORATADINE [Concomitant]
  6. TOPROL-XL [Concomitant]
  7. TERAZOSIN HYDROCHLORIDE [Concomitant]
  8. OMEPRAZOLE [Concomitant]
  9. FUROSEMIDE [Concomitant]
  10. FINASTERIDE [Concomitant]
  11. NICOTINIC ACID [Concomitant]
  12. CALCIPOTRIENE [Concomitant]
  13. TAMSULOSIN HCL [Concomitant]

REACTIONS (1)
  - NODAL MARGINAL ZONE B-CELL LYMPHOMA [None]
